FAERS Safety Report 21417211 (Version 1)
Quarter: 2022Q4

REPORT INFORMATION
  Report Type: Spontaneous
  Country: US (occurrence: US)
  Receive Date: 20221006
  Receipt Date: 20221006
  Transmission Date: 20230113
  Serious: Yes (Other)
  Sender: FDA-Public Use
  Company Number: US-BAYER-2022A135135

PATIENT
  Age: 84 Year
  Sex: Male

DRUGS (2)
  1. NUBEQA [Suspect]
     Active Substance: DAROLUTAMIDE
  2. ENZALUTAMIDE [Suspect]
     Active Substance: ENZALUTAMIDE
     Indication: Prostate cancer
     Dosage: 160 MG, QD
     Route: 048
     Dates: start: 20220607

REACTIONS (8)
  - Weight decreased [None]
  - Fatigue [None]
  - Asthenia [None]
  - Myalgia [None]
  - Constipation [None]
  - Hot flush [None]
  - Taste disorder [None]
  - Decreased appetite [None]
